FAERS Safety Report 8765515 (Version 1)
Quarter: 2012Q4

REPORT INFORMATION
  Report Type: 
  Country: BR (occurrence: BR)
  Receive Date: 20120903
  Receipt Date: 20120903
  Transmission Date: 20130627
  Serious: Yes (Other)
  Sender: FDA-Public Use
  Company Number: PHHY2012BR076061

PATIENT
  Sex: Female
  Weight: 57 kg

DRUGS (1)
  1. FORASEQ [Suspect]
     Indication: ASTHMA
     Dosage: 1 DF, BID (1 inhalation of each treatment at morning and at night)

REACTIONS (1)
  - Osteoporosis [Not Recovered/Not Resolved]
